FAERS Safety Report 5354672-8 (Version None)
Quarter: 2007Q2

REPORT INFORMATION
  Report Type: 
  Country: None (occurrence: None)
  Receive Date: 20070612
  Receipt Date: 20070605
  Transmission Date: 20071010
  Serious: Yes (Hospitalization)
  Sender: FDA-Public Use
  Company Number: US-ROXANE LABORATORIES, INC-2007-BP-07600RO

PATIENT
  Age: 65 Year
  Sex: Female

DRUGS (2)
  1. ACETAMINOPHEN W/ CODEINE [Suspect]
     Indication: HEADACHE
     Dosage: 40 TABLETS OVER 3-4 DAYS
     Route: 048
  2. ACETYLCYSTEINE SOLUTION USP, 20% (STERILE) [Suspect]
     Indication: ACCIDENTAL OVERDOSE

REACTIONS (9)
  - ABDOMINAL PAIN [None]
  - ACCIDENTAL OVERDOSE [None]
  - ACUTE HEPATIC FAILURE [None]
  - COAGULOPATHY [None]
  - DRUG INEFFECTIVE FOR UNAPPROVED INDICATION [None]
  - ENCEPHALOPATHY [None]
  - NAUSEA [None]
  - RENAL FAILURE [None]
  - VOMITING [None]
